FAERS Safety Report 24086018 (Version 1)
Quarter: 2024Q3

REPORT INFORMATION
  Report Type: Spontaneous
  Country: GB (occurrence: None)
  Receive Date: 20240712
  Receipt Date: 20240712
  Transmission Date: 20241017
  Serious: Yes (Life-Threatening, Other)
  Sender: ASTRAZENECA
  Company Number: 2024A156739

PATIENT
  Age: 64 Year
  Sex: Male
  Weight: 86 kg

DRUGS (4)
  1. DURVALUMAB [Suspect]
     Active Substance: DURVALUMAB
     Indication: Cholangiocarcinoma
     Dates: start: 20240624
  2. CREON [Concomitant]
     Active Substance: PANCRELIPASE AMYLASE\PANCRELIPASE LIPASE\PANCRELIPASE PROTEASE
     Indication: Cholangiocarcinoma
     Dates: start: 20240315
  3. OMEPRAZOLE [Concomitant]
     Active Substance: OMEPRAZOLE
     Indication: Cholangiocarcinoma
     Dates: start: 20240306
  4. CALCIUM\CHOLECALCIFEROL [Concomitant]
     Active Substance: CALCIUM\CHOLECALCIFEROL
     Indication: Adverse drug reaction
     Dates: start: 20240328

REACTIONS (1)
  - Adrenocortical insufficiency acute [Recovered/Resolved with Sequelae]

NARRATIVE: CASE EVENT DATE: 20240628
